FAERS Safety Report 20489641 (Version 1)
Quarter: 2022Q1

REPORT INFORMATION
  Report Type: Spontaneous
  Country: FR (occurrence: None)
  Receive Date: 20220218
  Receipt Date: 20220218
  Transmission Date: 20220423
  Serious: Yes (Hospitalization)
  Sender: FDA-Public Use
  Company Number: None

PATIENT
  Age: 30 Year
  Sex: Female
  Weight: 56 kg

DRUGS (7)
  1. PROPOFOL [Suspect]
     Active Substance: PROPOFOL
     Indication: General anaesthesia
     Dosage: 300MG*1X/DAY
     Route: 041
     Dates: start: 20211105, end: 20211105
  2. ONDANSETRON HYDROCHLORIDE [Suspect]
     Active Substance: ONDANSETRON HYDROCHLORIDE
     Indication: Nausea
     Dosage: 4MG*1X/DAY
     Route: 041
     Dates: start: 20211105, end: 20211105
  3. NEFOPAM HYDROCHLORIDE [Suspect]
     Active Substance: NEFOPAM HYDROCHLORIDE
     Indication: Pain
     Dosage: 20 MG*1X/DAY
     Route: 041
     Dates: start: 20211105, end: 20211105
  4. NOREPINEPHRINE BITARTRATE [Suspect]
     Active Substance: NOREPINEPHRINE BITARTRATE
     Indication: Hypotension
     Dosage: 0.3MG/H
     Route: 041
     Dates: start: 20211105, end: 20211105
  5. SUFENTANIL [Suspect]
     Active Substance: SUFENTANIL
     Indication: General anaesthesia
     Dosage: 10MICROGRAM*1X/DAY
     Route: 041
     Dates: start: 20211105, end: 20211105
  6. EPHEDRINE HYDROCHLORIDE [Suspect]
     Active Substance: EPHEDRINE HYDROCHLORIDE
     Indication: Hypotension
     Dosage: 24MG*1X/DAY
     Route: 041
     Dates: start: 20211105, end: 20211105
  7. DROPERIDOL [Suspect]
     Active Substance: DROPERIDOL
     Indication: Nausea
     Dosage: 1.25MG*1X/DAY
     Route: 041
     Dates: start: 20211105, end: 20211105

REACTIONS (2)
  - Stress cardiomyopathy [Recovered/Resolved]
  - Troponin increased [Recovered/Resolved]

NARRATIVE: CASE EVENT DATE: 20211105
